FAERS Safety Report 9962736 (Version 2)
Quarter: 2014Q1

REPORT INFORMATION
  Report Type: Report from Study
  Country: US (occurrence: US)
  Receive Date: 20140305
  Receipt Date: 20140305
  Transmission Date: 20141002
  Serious: No
  Sender: FDA-Public Use
  Company Number: US-ABBVIE-13P-163-1098688-00

PATIENT
  Age: 34 Year
  Sex: Male
  Weight: 102.6 kg

DRUGS (5)
  1. HUMIRA [Suspect]
     Indication: PSORIASIS
     Route: 058
     Dates: start: 201204, end: 20130506
  2. HUMIRA [Suspect]
     Indication: PSORIATIC ARTHROPATHY
     Route: 058
     Dates: start: 20130611
  3. FLEXERIL [Concomitant]
     Indication: PRODUCT USED FOR UNKNOWN INDICATION
  4. NAPROXEN [Concomitant]
     Indication: PRODUCT USED FOR UNKNOWN INDICATION
  5. TRAMADOL [Concomitant]
     Indication: PRODUCT USED FOR UNKNOWN INDICATION

REACTIONS (12)
  - Poor quality drug administered [Unknown]
  - White blood cell count decreased [Unknown]
  - Incorrect product storage [Unknown]
  - Psoriasis [Unknown]
  - Arthralgia [Unknown]
  - Local swelling [Unknown]
  - Back pain [Unknown]
  - Pain in extremity [Unknown]
  - Paraesthesia [Unknown]
  - Weight increased [Unknown]
  - Fibromyalgia [Unknown]
  - Drug ineffective [Unknown]
